FAERS Safety Report 6340938-1 (Version None)
Quarter: 2009Q3

REPORT INFORMATION
  Report Type: 
  Country: None (occurrence: None)
  Receive Date: 20090902
  Receipt Date: 20090902
  Transmission Date: 20100115
  Serious: Yes (Other)
  Sender: FDA-Public Use
  Company Number: None

PATIENT
  Age: 27 Year
  Sex: Female
  Weight: 61.2356 kg

DRUGS (1)
  1. IC AMPHETAMINE SALTS 20 MG BARR [Suspect]
     Indication: ATTENTION DEFICIT/HYPERACTIVITY DISORDER
     Dosage: 20 MG ONCE A DAY PO
     Route: 048
     Dates: start: 20060120, end: 20090820

REACTIONS (8)
  - DIARRHOEA [None]
  - GASTRIC DISORDER [None]
  - INSOMNIA [None]
  - PALPITATIONS [None]
  - PARANOIA [None]
  - PRODUCT MEASURED POTENCY ISSUE [None]
  - PRODUCT SUBSTITUTION ISSUE [None]
  - TREMOR [None]
